FAERS Safety Report 24112487 (Version 1)
Quarter: 2024Q3

REPORT INFORMATION
  Report Type: Report from Study
  Country: US (occurrence: None)
  Receive Date: 20240719
  Receipt Date: 20240719
  Transmission Date: 20241017
  Serious: Yes (Other)
  Sender: ASTRAZENECA
  Company Number: 2020SE35308

PATIENT
  Sex: Female

DRUGS (13)
  1. TAGRISSO [Suspect]
     Active Substance: OSIMERTINIB
     Indication: Lung neoplasm malignant
     Route: 048
     Dates: start: 20180920
  2. NEXIUM [Suspect]
     Active Substance: ESOMEPRAZOLE MAGNESIUM
     Dosage: UNKNOWN
     Route: 048
  3. ASPIRIN [Concomitant]
     Active Substance: ASPIRIN
  4. CALTRATE [Concomitant]
     Active Substance: CALCIUM CARBONATE
  5. COZAAR [Concomitant]
     Active Substance: LOSARTAN POTASSIUM
  6. HYDROCORTISONE [Concomitant]
     Active Substance: HYDROCORTISONE\HYDROCORTISONE ACETATE
  7. HYZAAR [Concomitant]
     Active Substance: HYDROCHLOROTHIAZIDE\LOSARTAN POTASSIUM
  8. IMODIUM A-D [Concomitant]
     Active Substance: LOPERAMIDE HYDROCHLORIDE
  9. MOBIC [Concomitant]
     Active Substance: MELOXICAM
  10. VITAMINS [Concomitant]
     Active Substance: VITAMINS
  11. NORVASC [Concomitant]
     Active Substance: AMLODIPINE BESYLATE
  12. XANAX XR [Concomitant]
     Active Substance: ALPRAZOLAM
  13. ZOFRAN [Concomitant]
     Active Substance: ONDANSETRON HYDROCHLORIDE

REACTIONS (2)
  - Coronary artery occlusion [Recovering/Resolving]
  - Contusion [Unknown]
